FAERS Safety Report 4391441-X (Version None)
Quarter: 2004Q3

REPORT INFORMATION
  Report Type: 
  Country: None (occurrence: None)
  Receive Date: 20040707
  Receipt Date: 20040604
  Transmission Date: 20050211
  Serious: Yes (Hospitalization)
  Sender: FDA-Public Use
  Company Number: JP-GLAXOSMITHKLINE-B0334922A

PATIENT
  Age: 78 Year
  Sex: Male
  Weight: 55.1 kg

DRUGS (11)
  1. VALTREX [Suspect]
     Indication: HERPES ZOSTER
     Dosage: 1000MG PER DAY
     Route: 048
     Dates: start: 20040531, end: 20040601
  2. KREMEZIN [Concomitant]
     Indication: DRUG USE FOR UNKNOWN INDICATION
     Route: 048
  3. CALTAN [Concomitant]
     Dosage: 3000MG PER DAY
     Route: 048
  4. ROCALTROL [Concomitant]
     Dosage: .5MCG PER DAY
     Route: 048
  5. PLETAL [Concomitant]
     Indication: CEREBRAL INFARCTION
     Dosage: 100MG PER DAY
     Route: 048
  6. ARICEPT [Concomitant]
     Indication: DEMENTIA ALZHEIMER'S TYPE
     Dosage: 5MG PER DAY
     Route: 048
  7. RISUMIC [Concomitant]
     Indication: ORTHOSTATIC HYPOTENSION
     Dosage: 10MG PER DAY
     Route: 048
  8. MESADORIN-S [Concomitant]
     Indication: GASTRITIS
     Dosage: 1.34MG PER DAY
     Route: 048
  9. DIHYDERGOT [Concomitant]
     Indication: ORTHOSTATIC HYPOTENSION
     Dosage: .99MG PER DAY
     Route: 048
  10. ALOSENN [Concomitant]
     Indication: CONSTIPATION
     Dosage: .5G PER DAY
     Route: 048
  11. YODEL S [Concomitant]
     Indication: CONSTIPATION
     Dosage: 80MG PER DAY
     Route: 048

REACTIONS (4)
  - DEPRESSED LEVEL OF CONSCIOUSNESS [None]
  - ENCEPHALOPATHY [None]
  - GAIT DISTURBANCE [None]
  - MYOCLONUS [None]
